FAERS Safety Report 21304860 (Version 1)
Quarter: 2022Q3

REPORT INFORMATION
  Report Type: Spontaneous
  Country: TR (occurrence: TR)
  Receive Date: 20220907
  Receipt Date: 20220907
  Transmission Date: 20221027
  Serious: Yes (Other)
  Sender: FDA-Public Use
  Company Number: TR-GLAXOSMITHKLINE-TRCH2022GSK032012

PATIENT

DRUGS (2)
  1. DICLOFENAC POTASSIUM [Suspect]
     Active Substance: DICLOFENAC POTASSIUM
     Indication: Exposure during pregnancy
     Dosage: UNK
     Route: 064
  2. HERBALS [Suspect]
     Active Substance: HERBALS
     Indication: Exposure during pregnancy
     Dosage: UNK
     Route: 064

REACTIONS (3)
  - Right ventricular hypertrophy [Recovered/Resolved]
  - Respiratory distress [Recovered/Resolved]
  - Foetal exposure during pregnancy [Unknown]
